FAERS Safety Report 6911071-2 (Version None)
Quarter: 2010Q3

REPORT INFORMATION
  Report Type: 
  Country: None (occurrence: None)
  Receive Date: 20100806
  Receipt Date: 20100727
  Transmission Date: 20110219
  Serious: Yes (Death)
  Sender: FDA-Public Use
  Company Number: AU-WYE-G06461610

PATIENT
  Age: 35 Year
  Sex: Male

DRUGS (7)
  1. EFFEXOR XR [Suspect]
     Indication: DEPRESSION
     Dosage: 450MG DAILY
     Route: 048
  2. EFFEXOR XR [Suspect]
     Indication: POST-TRAUMATIC STRESS DISORDER
  3. ACETAMINOPHEN [Concomitant]
     Dosage: WHEN REQUIRED
  4. SEROQUEL [Suspect]
     Dosage: 225MG DAILY
  5. ZYRTEC [Concomitant]
     Dosage: WHEN REQUIRED
  6. METHADONE [Suspect]
     Dosage: 40MG DAILY
  7. SANDOMIGRAN [Suspect]

REACTIONS (5)
  - CARDIO-RESPIRATORY ARREST [None]
  - CHEYNE-STOKES RESPIRATION [None]
  - CONVULSION [None]
  - DRUG TOXICITY [None]
  - HEADACHE [None]
